FAERS Safety Report 7744017-8 (Version None)
Quarter: 2011Q3

REPORT INFORMATION
  Report Type: 
  Country: None (occurrence: None)
  Receive Date: 20110819
  Receipt Date: 20110705
  Transmission Date: 20111222
  Serious: No
  Sender: FDA-Public Use
  Company Number: 035655

PATIENT
  Sex: Male
  Weight: 60.1 kg

DRUGS (3)
  1. LACOSAMIDE [Suspect]
     Indication: CONVULSION
     Dosage: 150 MG BID ORAL
     Route: 048
     Dates: start: 20100601
  2. VALIUM [Concomitant]
  3. DEPAKOTE [Concomitant]

REACTIONS (2)
  - WEIGHT INCREASED [None]
  - INCREASED APPETITE [None]
